FAERS Safety Report 13353104 (Version 1)
Quarter: 2017Q1

REPORT INFORMATION
  Report Type: Report from Study
  Country: DE (occurrence: DE)
  Receive Date: 20170321
  Receipt Date: 20170321
  Transmission Date: 20170429
  Serious: Yes (Hospitalization, Other)
  Sender: FDA-Public Use
  Company Number: DE-ROCHE-1857411

PATIENT

DRUGS (4)
  1. MYCOPHENOLATE MOFETIL. [Suspect]
     Active Substance: MYCOPHENOLATE MOFETIL
     Indication: IMMUNOSUPPRESSION
     Route: 065
  2. LEDIPASVIR [Suspect]
     Active Substance: LEDIPASVIR
     Indication: HEPATITIS C
     Route: 065
  3. RIBAVIRIN. [Suspect]
     Active Substance: RIBAVIRIN
     Indication: HEPATITIS C
     Route: 065
  4. SOFOSBUVIR [Suspect]
     Active Substance: SOFOSBUVIR
     Indication: HEPATITIS C
     Route: 065

REACTIONS (16)
  - Dizziness [Unknown]
  - Acute coronary syndrome [Unknown]
  - Anaemia [Unknown]
  - Dyspnoea exertional [Unknown]
  - Hip fracture [Unknown]
  - Joint effusion [Unknown]
  - Fatigue [Unknown]
  - Headache [Unknown]
  - Irritability [Unknown]
  - Rash [Unknown]
  - Oedema peripheral [Unknown]
  - Pruritus [Unknown]
  - Nervous system disorder [Unknown]
  - Cerebrovascular accident [Unknown]
  - Fall [Unknown]
  - Hepatitis C [Unknown]
